FAERS Safety Report 7762473-6 (Version None)
Quarter: 2011Q3

REPORT INFORMATION
  Report Type: 
  Country: None (occurrence: None)
  Receive Date: 20110920
  Receipt Date: 20110913
  Transmission Date: 20111222
  Serious: Yes (Hospitalization)
  Sender: FDA-Public Use
  Company Number: ES-ABBOTT-11P-144-0855011-00

PATIENT
  Age: 43 Year
  Sex: Female

DRUGS (3)
  1. CEFUROXIME [Concomitant]
     Indication: PRODUCT USED FOR UNKNOWN INDICATION
     Dates: start: 20110601, end: 20110615
  2. LAMOTRIGINE [Suspect]
     Indication: EPILEPSY
     Dosage: DAILY DOSE: 50MG
     Route: 048
     Dates: start: 20110601, end: 20110618
  3. DEPAKENE [Suspect]
     Indication: EPILEPSY
     Dosage: DAILY DOSE: 600MG
     Route: 048
     Dates: start: 20110331, end: 20110618

REACTIONS (3)
  - RASH [None]
  - KERATOPATHY [None]
  - HEPATITIS [None]
